FAERS Safety Report 6231804-0 (Version None)
Quarter: 2009Q2

REPORT INFORMATION
  Report Type: 
  Country: None (occurrence: None)
  Receive Date: 20090616
  Receipt Date: 20090609
  Transmission Date: 20091009
  Serious: Yes (Other)
  Sender: FDA-Public Use
  Company Number: US-JNJFOC-20090603629

PATIENT
  Age: 28 Year
  Sex: Male

DRUGS (2)
  1. EXTRA STRENGTH TYLENOL [Suspect]
     Indication: INSOMNIA
     Dosage: A WHOLE BOTTLE OVER THE WEEKEND
     Route: 048
  2. OXYCODONE [Concomitant]
     Dosage: FOR A WHILE

REACTIONS (4)
  - BLOOD URINE PRESENT [None]
  - INTENTIONAL OVERDOSE [None]
  - LIVER DISORDER [None]
  - RENAL PAIN [None]
